FAERS Safety Report 24727745 (Version 4)
Quarter: 2025Q2

REPORT INFORMATION
  Report Type: Spontaneous
  Country: US (occurrence: US)
  Receive Date: 20241212
  Receipt Date: 20250425
  Transmission Date: 20250717
  Serious: Yes (Other)
  Sender: ELI LILLY AND COMPANY
  Company Number: US-ELI_LILLY_AND_COMPANY-US202412001345

PATIENT
  Age: 69 Year
  Sex: Male
  Weight: 78.7 kg

DRUGS (12)
  1. TALTZ [Interacting]
     Active Substance: IXEKIZUMAB
     Indication: Psoriatic arthropathy
     Route: 058
     Dates: start: 20231028
  2. TALTZ [Interacting]
     Active Substance: IXEKIZUMAB
     Route: 058
     Dates: start: 20241030
  3. TALTZ [Interacting]
     Active Substance: IXEKIZUMAB
     Route: 058
     Dates: start: 20241201
  4. TALTZ [Interacting]
     Active Substance: IXEKIZUMAB
     Route: 058
  5. MESALAMINE [Interacting]
     Active Substance: MESALAMINE
     Indication: Colitis microscopic
     Route: 065
  6. ACETAMINOPHEN\TRAMADOL HYDROCHLORIDE [Concomitant]
     Active Substance: ACETAMINOPHEN\TRAMADOL HYDROCHLORIDE
     Indication: Product used for unknown indication
  7. POTASSIUM [Concomitant]
     Active Substance: POTASSIUM
     Indication: Product used for unknown indication
  8. LOSARTAN [Concomitant]
     Active Substance: LOSARTAN
     Indication: Product used for unknown indication
  9. NAPROXEN [Concomitant]
     Active Substance: NAPROXEN
     Indication: Product used for unknown indication
  10. AMITRIPTYLINE [Concomitant]
     Active Substance: AMITRIPTYLINE
     Indication: Product used for unknown indication
  11. HYDROCHLOROTHIAZIDE [Concomitant]
     Active Substance: HYDROCHLOROTHIAZIDE
     Indication: Product used for unknown indication
     Route: 065
  12. FLECAINIDE [Concomitant]
     Active Substance: FLECAINIDE
     Indication: Product used for unknown indication
     Route: 065

REACTIONS (9)
  - Colitis microscopic [Recovering/Resolving]
  - Atrial fibrillation [Unknown]
  - Cyst [Unknown]
  - Drug interaction [Unknown]
  - Glomerular filtration rate decreased [Unknown]
  - Blood urea increased [Unknown]
  - Injection site pruritus [Unknown]
  - Injection site swelling [Unknown]
  - Injection site haemorrhage [Unknown]

NARRATIVE: CASE EVENT DATE: 20240704
